FAERS Safety Report 15335029 (Version 2)
Quarter: 2018Q3

REPORT INFORMATION
  Report Type: Spontaneous
  Country: JP (occurrence: JP)
  Receive Date: 20180830
  Receipt Date: 20180918
  Transmission Date: 20181010
  Serious: Yes (Hospitalization, Disabling, Other)
  Sender: FDA-Public Use
  Company Number: JP-JNJFOC-20180801765

PATIENT
  Age: 79 Year
  Sex: Female
  Weight: 48.1 kg

DRUGS (11)
  1. XARELTO [Suspect]
     Active Substance: RIVAROXABAN
     Indication: ATRIAL FIBRILLATION
     Dosage: XARELTO 10 MG
     Route: 048
     Dates: start: 20171016, end: 20180726
  2. SUPER CAL600?MG300 [Concomitant]
     Indication: HYPOCALCAEMIA
     Route: 048
     Dates: start: 20150123, end: 20180726
  3. LYRICA [Concomitant]
     Active Substance: PREGABALIN
     Indication: NEUROMYOPATHY
     Route: 048
     Dates: start: 201604, end: 20180726
  4. BISOPROLOL [Concomitant]
     Active Substance: BISOPROLOL
     Indication: ATRIAL FIBRILLATION
     Route: 048
     Dates: start: 201710, end: 20180726
  5. MAINTATE [Concomitant]
     Active Substance: BISOPROLOL FUMARATE
     Route: 065
  6. DENOSUMAB [Concomitant]
     Active Substance: DENOSUMAB
     Indication: OSTEOPOROSIS
     Route: 058
     Dates: start: 20150122, end: 20171211
  7. PREDONINE [Concomitant]
     Active Substance: PREDNISOLONE
     Indication: NEUROMYELITIS OPTICA SPECTRUM DISORDER
     Route: 048
     Dates: start: 200611
  8. BETANIS [Concomitant]
     Active Substance: MIRABEGRON
     Route: 065
  9. CALONAL [Concomitant]
     Active Substance: ACETAMINOPHEN
     Route: 065
  10. BLOPRESS [Concomitant]
     Active Substance: CANDESARTAN CILEXETIL
     Indication: HYPERTENSION
     Route: 048
     Dates: start: 20170911, end: 20180726
  11. PRAVASTATIN SODIUM. [Concomitant]
     Active Substance: PRAVASTATIN SODIUM
     Route: 065

REACTIONS (5)
  - Altered state of consciousness [Unknown]
  - Urinary tract infection [Unknown]
  - Putamen haemorrhage [Recovered/Resolved with Sequelae]
  - Hemiplegia [Unknown]
  - Blood pressure increased [Unknown]

NARRATIVE: CASE EVENT DATE: 2018
